FAERS Safety Report 4292233-2 (Version None)
Quarter: 2004Q1

REPORT INFORMATION
  Report Type: 
  Country: None (occurrence: None)
  Receive Date: 20040211
  Receipt Date: 20030904
  Transmission Date: 20041129
  Serious: Yes (Other)
  Sender: FDA-Public Use
  Company Number: US-GLAXOSMITHKLINE-A0424755A

PATIENT
  Age: 51 Year
  Sex: Female
  Weight: 68.2 kg

DRUGS (13)
  1. EPIVIR [Suspect]
     Indication: HIV INFECTION
     Route: 048
     Dates: start: 20021001, end: 20021101
  2. RETROVIR [Suspect]
     Indication: HIV INFECTION
     Route: 065
     Dates: start: 20021001, end: 20021101
  3. CELEBREX [Suspect]
     Indication: ARTHRITIS
     Dosage: 200MG TWICE PER DAY
     Route: 048
     Dates: start: 19980101
  4. CRIXIVAN [Suspect]
     Indication: HIV INFECTION
     Route: 065
     Dates: start: 20021001, end: 20021101
  5. DARVOCET [Concomitant]
  6. VITAMIN C [Concomitant]
  7. ELAVIL [Concomitant]
  8. ASPIRIN [Concomitant]
  9. MULTI-VITAMINS [Concomitant]
  10. ERGOCALCIFEROL [Concomitant]
  11. RETINOL [Concomitant]
  12. PANTHENOL [Concomitant]
  13. VIVELLE [Concomitant]

REACTIONS (3)
  - GLAUCOMA [None]
  - OCULAR HYPERTENSION [None]
  - OPEN ANGLE GLAUCOMA [None]
